FAERS Safety Report 23917789 (Version 1)
Quarter: 2024Q2

REPORT INFORMATION
  Report Type: Spontaneous
  Country: ES (occurrence: ES)
  Receive Date: 20240530
  Receipt Date: 20240530
  Transmission Date: 20240716
  Serious: Yes (Other)
  Sender: FDA-Public Use
  Company Number: ES-UCBSA-2023060728

PATIENT
  Age: 17 Year
  Sex: Male
  Weight: 85 kg

DRUGS (1)
  1. FINTEPLA [Suspect]
     Active Substance: FENFLURAMINE
     Indication: Lennox-Gastaut syndrome
     Dosage: 3.3 MILLIGRAM, 2X/DAY (BID)

REACTIONS (2)
  - Epilepsy [Unknown]
  - Anxiety [Not Recovered/Not Resolved]
